FAERS Safety Report 23538113 (Version 1)
Quarter: 2024Q1

REPORT INFORMATION
  Report Type: Spontaneous
  Country: BG (occurrence: BG)
  Receive Date: 20240219
  Receipt Date: 20240219
  Transmission Date: 20240410
  Serious: Yes (Hospitalization, Other)
  Sender: FDA-Public Use
  Company Number: BG-MACLEODS PHARMACEUTICALS US LTD-MAC2024045889

PATIENT

DRUGS (8)
  1. AMLODIPINE [Suspect]
     Active Substance: AMLODIPINE BESYLATE
     Indication: Hypertension
     Dosage: 10 MILLIGRAM (2 X 5MG)
     Route: 065
     Dates: start: 2021, end: 20230331
  2. VALSARTAN [Suspect]
     Active Substance: VALSARTAN
     Indication: Hypertension
     Dosage: 160 MILLIGRAM 1 X 160MG
     Route: 065
     Dates: start: 20230401
  3. RANITIDINE [Suspect]
     Active Substance: RANITIDINE
     Indication: Duodenal ulcer
     Dosage: UNK
     Route: 065
  4. RANITIDINE [Suspect]
     Active Substance: RANITIDINE
     Indication: Gastritis
  5. MOXONIDINE [Suspect]
     Active Substance: MOXONIDINE
     Indication: Hypertension
     Dosage: 0.2 MILLIGRAM 1X 0.2MG
     Route: 065
     Dates: start: 2021, end: 20230331
  6. RILMENIDINE [Suspect]
     Active Substance: RILMENIDINE
     Indication: Hypertension
     Dosage: 1 MILLIGRAM 1X1MG
     Route: 065
     Dates: start: 20230104
  7. HYDROCHLOROTHIAZIDE [Suspect]
     Active Substance: HYDROCHLOROTHIAZIDE
     Indication: Hypertension
     Dosage: 0.5 DOSAGE FORM, QOD
     Route: 065
     Dates: start: 20230401
  8. HYDROCHLOROTHIAZIDE [Suspect]
     Active Substance: HYDROCHLOROTHIAZIDE
     Dosage: 0.5 DOSAGE FORM OF 25MG
     Route: 065
     Dates: start: 2021, end: 20230331

REACTIONS (3)
  - Superficial spreading melanoma stage I [Recovering/Resolving]
  - Dysplastic naevus [Recovering/Resolving]
  - Manufacturing materials contamination [Recovering/Resolving]

NARRATIVE: CASE EVENT DATE: 20220101
